FAERS Safety Report 13930175 (Version 2)
Quarter: 2017Q3

REPORT INFORMATION
  Report Type: Report from Study
  Country: US (occurrence: US)
  Receive Date: 20170901
  Receipt Date: 20170913
  Transmission Date: 20171127
  Serious: Yes (Hospitalization)
  Sender: FDA-Public Use
  Company Number: US-JNJFOC-20170706886

PATIENT
  Age: 70 Year
  Sex: Male

DRUGS (12)
  1. ATORVASTATIN [Concomitant]
     Active Substance: ATORVASTATIN
  2. RITUXAN [Suspect]
     Active Substance: RITUXIMAB
     Indication: PRODUCT USED FOR UNKNOWN INDICATION
     Route: 065
  3. SILDENAFIL. [Concomitant]
     Active Substance: SILDENAFIL
  4. TRAMADOL. [Suspect]
     Active Substance: TRAMADOL
     Indication: HEADACHE
     Route: 065
  5. IMBRUVICA [Suspect]
     Active Substance: IBRUTINIB
     Indication: CHRONIC LYMPHOCYTIC LEUKAEMIA
     Route: 048
     Dates: start: 201405, end: 2014
  6. TYLENOL [Concomitant]
     Active Substance: ACETAMINOPHEN
  7. IMBRUVICA [Suspect]
     Active Substance: IBRUTINIB
     Indication: CHRONIC LYMPHOCYTIC LEUKAEMIA
     Route: 048
     Dates: start: 2014, end: 20170830
  8. AMLODIPINE [Concomitant]
     Active Substance: AMLODIPINE BESYLATE
  9. METOPROLOL. [Concomitant]
     Active Substance: METOPROLOL
  10. BENAZEPRIL [Concomitant]
     Active Substance: BENAZEPRIL HYDROCHLORIDE
  11. COQ10 [Concomitant]
     Active Substance: UBIDECARENONE
  12. PANTOPRAZOLE [Concomitant]
     Active Substance: PANTOPRAZOLE

REACTIONS (14)
  - Subdural haematoma [Unknown]
  - Adverse drug reaction [Unknown]
  - Diarrhoea [Recovering/Resolving]
  - Stomatitis [Unknown]
  - Feeling abnormal [Unknown]
  - Pain [Recovering/Resolving]
  - Haemoptysis [Unknown]
  - Blood count abnormal [Unknown]
  - Skin ulcer [Unknown]
  - Somnolence [Unknown]
  - Contusion [Not Recovered/Not Resolved]
  - Influenza [Recovered/Resolved]
  - Blood blister [Not Recovered/Not Resolved]
  - Petechiae [Not Recovered/Not Resolved]

NARRATIVE: CASE EVENT DATE: 2014
